FAERS Safety Report 6890399-9 (Version None)
Quarter: 2010Q3

REPORT INFORMATION
  Report Type: 
  Country: None (occurrence: None)
  Receive Date: 20100730
  Receipt Date: 20081016
  Transmission Date: 20110219
  Serious: No
  Sender: FDA-Public Use
  Company Number: US-PFIZER INC-2008087453

PATIENT
  Sex: Female

DRUGS (4)
  1. LIPITOR [Suspect]
  2. VYTORIN [Suspect]
  3. SIMVASTATIN [Suspect]
  4. CLONIDINE [Suspect]

REACTIONS (2)
  - HYPOAESTHESIA [None]
  - PAIN [None]
